FAERS Safety Report 6840914-6 (Version None)
Quarter: 2010Q3

REPORT INFORMATION
  Report Type: 
  Country: None (occurrence: None)
  Receive Date: 20100714
  Receipt Date: 20070622
  Transmission Date: 20110219
  Serious: No
  Sender: FDA-Public Use
  Company Number: US-PFIZER INC-2007052257

PATIENT
  Sex: Male
  Weight: 90.7 kg

DRUGS (3)
  1. CHANTIX [Suspect]
     Indication: SMOKING CESSATION THERAPY
     Dates: start: 20070524, end: 20070601
  2. DIOVANE [Concomitant]
     Indication: HYPERTENSION
  3. SPIRIVA [Concomitant]

REACTIONS (1)
  - PRURITUS [None]
